FAERS Safety Report 10384725 (Version 1)
Quarter: 2014Q3

REPORT INFORMATION
  Report Type: Report from Study
  Country: US (occurrence: US)
  Receive Date: 20140814
  Receipt Date: 20140814
  Transmission Date: 20150326
  Serious: Yes (Hospitalization)
  Sender: FDA-Public Use
  Company Number: US-ABBVIE-14P-163-1270529-00

PATIENT
  Age: 4 Year
  Sex: Male

DRUGS (2)
  1. UNKNOWN STEROID [Concomitant]
     Active Substance: UNSPECIFIED INGREDIENT
     Indication: EYE INFLAMMATION
  2. HUMIRA [Suspect]
     Active Substance: ADALIMUMAB
     Indication: RHEUMATOID ARTHRITIS
     Dates: start: 2014

REACTIONS (4)
  - Cough [Not Recovered/Not Resolved]
  - Papilloedema [Not Recovered/Not Resolved]
  - Rhinorrhoea [Not Recovered/Not Resolved]
  - Sneezing [Not Recovered/Not Resolved]

NARRATIVE: CASE EVENT DATE: 201406
